FAERS Safety Report 15291339 (Version 2)
Quarter: 2018Q3

REPORT INFORMATION
  Report Type: Report from Study
  Country: US (occurrence: US)
  Receive Date: 20180817
  Receipt Date: 20180905
  Transmission Date: 20181010
  Serious: Yes (Death)
  Sender: FDA-Public Use
  Company Number: US-PFIZER INC-2018331605

PATIENT
  Age: 75 Year
  Sex: Male

DRUGS (3)
  1. AMIODARONE HCL [Suspect]
     Active Substance: AMIODARONE HYDROCHLORIDE
     Dosage: UNK
  2. ATENOLOL. [Suspect]
     Active Substance: ATENOLOL
     Dosage: UNK
  3. DILTIAZEM HCL [Suspect]
     Active Substance: DILTIAZEM HYDROCHLORIDE
     Dosage: UNK

REACTIONS (9)
  - Bradycardia [Fatal]
  - Electrocardiogram QRS complex prolonged [Fatal]
  - Respiratory depression [Fatal]
  - Brain death [Fatal]
  - Muscle rigidity [Fatal]
  - Hypotension [Fatal]
  - Toxicity to various agents [Fatal]
  - Arrhythmia [Fatal]
  - Dystonia [Fatal]
